FAERS Safety Report 10074461 (Version 1)
Quarter: 2014Q2

REPORT INFORMATION
  Report Type: Spontaneous
  Country: US (occurrence: US)
  Receive Date: 20140411
  Receipt Date: 20140411
  Transmission Date: 20141212
  Serious: No
  Sender: FDA-Public Use
  Company Number: US-SANOFI-AVENTIS-2013SA093418

PATIENT
  Age: 32 Year
  Sex: Female

DRUGS (3)
  1. ALLEGRA-D, 12 HR [Suspect]
     Indication: HYPERSENSITIVITY
     Route: 048
  2. ALLEGRA-D, 24 HR [Suspect]
     Route: 065
  3. FLONASE [Concomitant]

REACTIONS (3)
  - Abdominal discomfort [Not Recovered/Not Resolved]
  - Nasopharyngitis [Not Recovered/Not Resolved]
  - Feeling cold [Not Recovered/Not Resolved]
